FAERS Safety Report 12608459 (Version 5)
Quarter: 2016Q3

REPORT INFORMATION
  Report Type: Spontaneous
  Country: FR (occurrence: FR)
  Receive Date: 20160729
  Receipt Date: 20160929
  Transmission Date: 20161109
  Serious: Yes (Death, Life-Threatening)
  Sender: FDA-Public Use
  Company Number: PHHY2016FR103231

PATIENT
  Age: 56 Year
  Sex: Female

DRUGS (3)
  1. SANDOSTATIN [Suspect]
     Active Substance: OCTREOTIDE ACETATE
     Indication: GASTROINTESTINAL NEOPLASM
     Dosage: 100 UG, UNK
     Route: 065
     Dates: start: 201604
  2. SANDOSTATIN [Suspect]
     Active Substance: OCTREOTIDE ACETATE
     Dosage: 500 UG, UNK
     Route: 065
     Dates: start: 201604
  3. SANDOSTATIN LAR DEPOT [Suspect]
     Active Substance: OCTREOTIDE ACETATE
     Indication: GASTROINTESTINAL NEOPLASM
     Dosage: 30 MG, EVERY 15 DAYS
     Route: 065
     Dates: start: 201605

REACTIONS (6)
  - Metastases to central nervous system [Fatal]
  - Malignant neoplasm progression [Fatal]
  - Inappropriate schedule of drug administration [Unknown]
  - Gastrointestinal neoplasm [Fatal]
  - General physical health deterioration [Not Recovered/Not Resolved]
  - Product use issue [Unknown]

NARRATIVE: CASE EVENT DATE: 201604
